FAERS Safety Report 5514959-2 (Version None)
Quarter: 2007Q4

REPORT INFORMATION
  Report Type: 
  Country: None (occurrence: None)
  Receive Date: 20071113
  Receipt Date: 20061020
  Transmission Date: 20080405
  Serious: No
  Sender: FDA-Public Use
  Company Number: A0624372A

PATIENT
  Age: 69 Year
  Sex: Female

DRUGS (2)
  1. COREG [Suspect]
     Route: 048
  2. PLAVIX [Concomitant]

REACTIONS (1)
  - ALOPECIA [None]
